FAERS Safety Report 14840157 (Version 1)
Quarter: 2018Q2

REPORT INFORMATION
  Report Type: Spontaneous
  Country: DE (occurrence: DE)
  Receive Date: 20180503
  Receipt Date: 20180503
  Transmission Date: 20180711
  Serious: Yes (Hospitalization)
  Sender: FDA-Public Use
  Company Number: DE-009507513-1804DEU009794

PATIENT
  Age: 71 Year
  Sex: Male

DRUGS (8)
  1. REKAWAN [Concomitant]
     Active Substance: POTASSIUM CHLORIDE
     Dosage: 13.4 MMOL, 0-2-0-2
  2. CLOPIDOGREL [Concomitant]
     Active Substance: CLOPIDOGREL BISULFATE
     Dosage: 75 MG, 1-0-0-0
  3. METOPROLOL. [Concomitant]
     Active Substance: METOPROLOL
     Dosage: 47.5 MG, 1-0-1-0
  4. SIMVASTATIN. [Suspect]
     Active Substance: SIMVASTATIN
     Dosage: 40 MG, 0-0-1-0
  5. ASPIRIN. [Concomitant]
     Active Substance: ASPIRIN
     Dosage: 100 MG, 1-0-0-0
  6. DIPYRONE [Concomitant]
     Active Substance: DIPYRONE
     Dosage: 30-30-30-30, DROPS
  7. RAMIPRIL. [Concomitant]
     Active Substance: RAMIPRIL
     Dosage: 5 MG, 1-0-1-0
  8. TAMSULOSIN HYDROCHLORIDE. [Concomitant]
     Active Substance: TAMSULOSIN HYDROCHLORIDE
     Dosage: 0.4 MG, 1-0-0-0

REACTIONS (6)
  - Rhabdomyolysis [Unknown]
  - General physical health deterioration [Unknown]
  - Muscular weakness [Unknown]
  - Wound [Unknown]
  - Myalgia [Unknown]
  - Fall [Unknown]
